FAERS Safety Report 7277576-2 (Version None)
Quarter: 2011Q1

REPORT INFORMATION
  Report Type: 
  Country: None (occurrence: None)
  Receive Date: 20110202
  Receipt Date: 20110202
  Transmission Date: 20110831
  Serious: Yes (Life-Threatening, Other)
  Sender: FDA-Public Use
  Company Number: None

PATIENT
  Age: 54 Year
  Sex: Female
  Weight: 72.5755 kg

DRUGS (1)
  1. COPAXONE [Suspect]
     Indication: MULTIPLE SCLEROSIS
     Dosage: 20 MG 1 SHOT A DAY SQ
     Dates: start: 20030609, end: 20100710

REACTIONS (3)
  - PERSONALITY CHANGE [None]
  - ANAEMIA [None]
  - ARTHRALGIA [None]
